FAERS Safety Report 8211390-6 (Version None)
Quarter: 2012Q1

REPORT INFORMATION
  Report Type: 
  Country: None (occurrence: None)
  Receive Date: 20120315
  Receipt Date: 20120312
  Transmission Date: 20120608
  Serious: Yes (Hospitalization)
  Sender: FDA-Public Use
  Company Number: FR-PFIZER INC-2012064078

PATIENT
  Age: 75 Year
  Sex: Female

DRUGS (15)
  1. MICARDIS [Concomitant]
     Dosage: 1 DF, 1X/DAY
  2. CRESTOR [Concomitant]
     Dosage: 1 DF, 1X/DAY
  3. LOPRESSOR [Concomitant]
     Dosage: 1 DF, 1X/DAY
  4. DUPHALAC [Concomitant]
  5. PROZAC [Concomitant]
     Dosage: 1 DF, 1X/DAY
  6. TAMSULOSIN [Concomitant]
     Dosage: 1 DF, 1X/DAY
  7. PLAVIX [Concomitant]
  8. POTASSIUM CHLORIDE [Concomitant]
  9. SOLU-MEDROL [Suspect]
     Indication: MULTIPLE SCLEROSIS RELAPSE
     Dosage: 500 MG, 2X/DAY
     Route: 042
     Dates: start: 20120201
  10. SOLU-MEDROL [Suspect]
     Dosage: 500 MG, 2X/DAY
     Dates: start: 20120202
  11. ZOLPIDEM [Concomitant]
     Dosage: 1 DF, 1X/DAY
  12. LEXOMIL [Concomitant]
     Dosage: 1 DF, 1X/DAY
  13. OMEPRAZOLE [Concomitant]
     Dosage: 1 DF, 1X/DAY
  14. ENALAPRIL [Concomitant]
  15. AMITRIPTYLINE HCL [Concomitant]
     Dosage: UNK

REACTIONS (1)
  - ACUTE CORONARY SYNDROME [None]
